FAERS Safety Report 19744167 (Version 4)
Quarter: 2021Q3

REPORT INFORMATION
  Report Type: Report from Study
  Country: None (occurrence: US)
  Receive Date: 20210824
  Receipt Date: 20210920
  Transmission Date: 20211014
  Serious: Yes (Hospitalization, Other)
  Sender: FDA-Public Use
  Company Number: US-ABBVIE-21K-163-4045155-00

PATIENT
  Sex: Female

DRUGS (4)
  1. VENCLEXTA [Suspect]
     Active Substance: VENETOCLAX
     Dosage: TAKE 2 TABLETS BY MOUTH DAILY EVERY 28 DAY(S) IN COMBINATION WITH 1?50 MILLIGRAMS
     Route: 048
  2. VENCLEXTA [Suspect]
     Active Substance: VENETOCLAX
     Dosage: TAKE 2 TABLETS BY MOUTH DAILY FOR 14 DAYS OF EACH 28 DAY CYCLE WITH FOOD
     Route: 048
  3. VENCLEXTA [Suspect]
     Active Substance: VENETOCLAX
     Dosage: TAKE 1 TABLET BY MOUTH DAILY EVERY 28 DAY IN COMBINATION WITH 2?10 MILLIGRAMS
     Route: 048
  4. VENCLEXTA [Suspect]
     Active Substance: VENETOCLAX
     Indication: ACUTE MYELOID LEUKAEMIA
     Dosage: TAKE 2 TABLETS BY MOUTH ONCE A DAY FOR 7 DAYS
     Route: 048

REACTIONS (4)
  - Off label use [Unknown]
  - Neoplasm malignant [Unknown]
  - Malaise [Unknown]
  - Hospitalisation [Unknown]
